FAERS Safety Report 12869406 (Version 1)
Quarter: 2016Q4

REPORT INFORMATION
  Report Type: Report from Study
  Country: US (occurrence: US)
  Receive Date: 20161020
  Receipt Date: 20161020
  Transmission Date: 20170207
  Serious: No
  Sender: FDA-Public Use
  Company Number: US-AMGEN-USASL2016109614

PATIENT
  Age: 73 Year
  Sex: Male
  Weight: 100.68 kg

DRUGS (33)
  1. VIAGRA [Concomitant]
     Active Substance: SILDENAFIL CITRATE
     Dosage: 50 MG, UNK
     Route: 048
  2. VICTOZA [Concomitant]
     Active Substance: LIRAGLUTIDE
     Dosage: 0.6/0.1 ML, QD
     Route: 058
  3. DONEPEZIL. [Concomitant]
     Active Substance: DONEPEZIL
     Dosage: 1 DF, QD
     Route: 048
  4. NITROSTAT [Concomitant]
     Active Substance: NITROGLYCERIN
     Dosage: 3 DF, AS NEEDED
     Route: 060
  5. ALPRAZOLAM. [Concomitant]
     Active Substance: ALPRAZOLAM
     Dosage: 0.25 MG, AS REQUIRED
     Route: 048
  6. CARVEDILOL. [Concomitant]
     Active Substance: CARVEDILOL
     Dosage: 2 DF, BID
     Route: 048
  7. CRESTOR [Concomitant]
     Active Substance: ROSUVASTATIN CALCIUM
     Dosage: 40 MG, QD
  8. CYCLOBENZAPRINE [Concomitant]
     Active Substance: CYCLOBENZAPRINE
     Dosage: 1 DF, BID
     Route: 048
  9. FENOGLIDE [Concomitant]
     Active Substance: FENOFIBRATE
     Dosage: 1 DF, QD
     Route: 048
  10. METFORMIN [Concomitant]
     Active Substance: METFORMIN HYDROCHLORIDE
     Dosage: 500 MG, BID
     Route: 048
  11. PROAIR HFA [Concomitant]
     Active Substance: ALBUTEROL SULFATE
     Dosage: 90 MUG, QD
     Route: 045
  12. ALBUTEROL. [Concomitant]
     Active Substance: ALBUTEROL
     Dosage: 2.5 MG/3ML, (0.083 %)
     Route: 045
  13. ASPIRIN. [Concomitant]
     Active Substance: ASPIRIN
     Dosage: 81 MG, QD
     Route: 048
  14. CENTRUM SILVER [Concomitant]
     Active Substance: MINERALS\VITAMINS
     Dosage: UNK
  15. SERTRALINE [Concomitant]
     Active Substance: SERTRALINE HYDROCHLORIDE
     Dosage: 100 MG, QD
     Route: 048
  16. ALLOPURINOL. [Concomitant]
     Active Substance: ALLOPURINOL
     Dosage: 300 MG, QD
     Route: 048
  17. FUROSEMIDE. [Concomitant]
     Active Substance: FUROSEMIDE
     Dosage: 40 MG, QD
     Route: 048
  18. SPIRONOLACTONE. [Concomitant]
     Active Substance: SPIRONOLACTONE
     Dosage: 25 MG, QD
     Route: 048
  19. TRAMADOL + ACETAMINOFEN [Concomitant]
     Active Substance: ACETAMINOPHEN\TRAMADOL
     Dosage: 1 DF, QID
     Route: 048
  20. L-METHYLFOLATE [Concomitant]
     Dosage: 15 MG, QD
     Route: 048
  21. NEXIUM [Concomitant]
     Active Substance: ESOMEPRAZOLE MAGNESIUM
     Dosage: 40 MG, QD
     Route: 048
  22. OMEGA 3 ACID ETHYL ESTERS [Concomitant]
     Active Substance: OMEGA-3-ACID ETHYL ESTERS
     Dosage: 2 DF, BID
     Route: 048
  23. CORLANOR [Suspect]
     Active Substance: IVABRADINE HYDROCHLORIDE
     Indication: CARDIAC FAILURE CONGESTIVE
     Dosage: 7.5 MG, BID
     Route: 048
  24. APIDRA [Concomitant]
     Active Substance: INSULIN GLULISINE
     Dosage: 100 U/ML
     Route: 058
  25. CLOPIDOGREL [Concomitant]
     Active Substance: CLOPIDOGREL BISULFATE
     Dosage: 1 DF, UNK
     Route: 048
  26. FLUTICASONE [Concomitant]
     Active Substance: FLUTICASONE\FLUTICASONE PROPIONATE
     Dosage: 50 MUG, QD
     Route: 045
  27. LEVOTHYROXINE. [Concomitant]
     Active Substance: LEVOTHYROXINE
     Dosage: 50 MUG, QD
     Route: 048
  28. MONTELUKAST [Concomitant]
     Active Substance: MONTELUKAST SODIUM
     Dosage: 1 DF, QD
     Route: 048
  29. NIACIN. [Concomitant]
     Active Substance: NIACIN
     Dosage: 500 MG, QD
     Route: 048
  30. RANEXA [Concomitant]
     Active Substance: RANOLAZINE
     Dosage: 500 MG, BID
     Route: 048
  31. FINASTERIDE. [Concomitant]
     Active Substance: FINASTERIDE
     Dosage: 5 MG, QD
     Route: 048
  32. VITAMIN D3 [Concomitant]
     Active Substance: CHOLECALCIFEROL
     Dosage: 1 DF, QD
     Route: 048
  33. ZYRTEC [Concomitant]
     Active Substance: CETIRIZINE HYDROCHLORIDE
     Dosage: 10 MG, QD

REACTIONS (3)
  - Dyspnoea [Unknown]
  - Asthenia [Unknown]
  - Confusional state [Unknown]
